FAERS Safety Report 25474162 (Version 1)
Quarter: 2025Q2

REPORT INFORMATION
  Report Type: Spontaneous
  Country: US (occurrence: US)
  Receive Date: 20250624
  Receipt Date: 20250624
  Transmission Date: 20250716
  Serious: Yes (Other)
  Sender: REGENERON
  Company Number: US-REGENERON PHARMACEUTICALS, INC.-2024-135160

PATIENT
  Sex: Female

DRUGS (2)
  1. EYLEA HD [Suspect]
     Active Substance: AFLIBERCEPT
     Indication: Neovascular age-related macular degeneration
     Route: 031
     Dates: start: 20240924
  2. EYLEA HD [Suspect]
     Active Substance: AFLIBERCEPT
     Route: 031
     Dates: start: 20240924

REACTIONS (3)
  - Eye inflammation [Recovering/Resolving]
  - Eye inflammation [Recovering/Resolving]
  - Corneal oedema [Recovering/Resolving]

NARRATIVE: CASE EVENT DATE: 20240925
